FAERS Safety Report 17377684 (Version 1)
Quarter: 2020Q1

REPORT INFORMATION
  Report Type: Spontaneous
  Country: US (occurrence: US)
  Receive Date: 20200205
  Receipt Date: 20200205
  Transmission Date: 20200409
  Serious: No
  Sender: FDA-Public Use
  Company Number: None

PATIENT
  Age: 65 Year
  Sex: Male
  Weight: 114.75 kg

DRUGS (12)
  1. AMLODIPINE [Concomitant]
     Active Substance: AMLODIPINE BESYLATE
  2. SIMVASTIN [Concomitant]
     Active Substance: SIMVASTATIN
  3. GLUCOSAMINE/CHONDROTIN [Concomitant]
     Active Substance: CHONDROITIN SULFATE (BOVINE)\GLUCOSAMINE SULFATE
  4. QUEEN CITY HEMP 500MG (CBD) [Suspect]
     Active Substance: CANNABIDIOL\HERBALS
     Indication: INFLAMMATION
  5. FOLIC ACID. [Concomitant]
     Active Substance: FOLIC ACID
  6. CALCIUM CITRATE [Concomitant]
     Active Substance: CALCIUM CITRATE
  7. IBUPROFEN. [Concomitant]
     Active Substance: IBUPROFEN
  8. LISINOPRIL. [Concomitant]
     Active Substance: LISINOPRIL
  9. QUEEN CITY HEMP CBD [Concomitant]
  10. VITAMIN D [Concomitant]
     Active Substance: VITAMIN D NOS
  11. QUEEN CITY HEMP 500MG (CBD) [Suspect]
     Active Substance: CANNABIDIOL\HERBALS
     Indication: PAIN MANAGEMENT
     Dosage: ?          QUANTITY:10 DROP(S);?
     Route: 060
     Dates: start: 20191118, end: 20200205
  12. ENTERIC ASPIRIN [Concomitant]
     Active Substance: ASPIRIN

REACTIONS (3)
  - Dyspepsia [None]
  - Hepatic steatosis [None]
  - Hepatotoxicity [None]

NARRATIVE: CASE EVENT DATE: 20200129
